FAERS Safety Report 7978992-3 (Version None)
Quarter: 2011Q4

REPORT INFORMATION
  Report Type: 
  Country: None (occurrence: None)
  Receive Date: 20111130
  Receipt Date: 20111123
  Transmission Date: 20120403
  Serious: Yes (Hospitalization)
  Sender: FDA-Public Use
  Company Number: 2011SP055396

PATIENT
  Age: 56 Year
  Sex: Female

DRUGS (5)
  1. VICTRELIS [Suspect]
     Indication: HEPATITIS C
     Dosage: 800 MG;TID;PO
     Route: 048
     Dates: start: 20110901, end: 20111120
  2. PEG-INTRON [Suspect]
     Indication: HEPATITIS C
     Dosage: 0.5 MCG;QW;
     Dates: start: 20110901, end: 20111118
  3. LISINOPRIL [Concomitant]
  4. REBETOL [Suspect]
     Indication: HEPATITIS C
     Dates: start: 20110901
  5. EFFEXOR [Concomitant]

REACTIONS (4)
  - ANAEMIA [None]
  - THINKING ABNORMAL [None]
  - NAUSEA [None]
  - INFECTION [None]
